FAERS Safety Report 19660215 (Version 2)
Quarter: 2021Q4

REPORT INFORMATION
  Report Type: Spontaneous
  Country: US (occurrence: US)
  Receive Date: 20210805
  Receipt Date: 20211028
  Transmission Date: 20220303
  Serious: Yes (Other)
  Sender: FDA-Public Use
  Company Number: US-GILEAD-2021-0542443

PATIENT
  Sex: Male
  Weight: 124.72 kg

DRUGS (28)
  1. ATRIPLA [Suspect]
     Active Substance: EFAVIRENZ\EMTRICITABINE\TENOFOVIR DISOPROXIL FUMARATE
     Indication: HIV infection
     Dosage: UNK
     Route: 048
     Dates: start: 20130520, end: 201306
  2. ATRIPLA [Suspect]
     Active Substance: EFAVIRENZ\EMTRICITABINE\TENOFOVIR DISOPROXIL FUMARATE
     Dosage: UNK
     Route: 065
     Dates: start: 20130604, end: 20131011
  3. ATRIPLA [Suspect]
     Active Substance: EFAVIRENZ\EMTRICITABINE\TENOFOVIR DISOPROXIL FUMARATE
     Dosage: UNK
     Route: 065
     Dates: start: 201310, end: 2017
  4. TRUVADA [Suspect]
     Active Substance: EMTRICITABINE\TENOFOVIR DISOPROXIL FUMARATE
     Indication: HIV infection
     Dosage: UNK
     Route: 048
     Dates: start: 2013
  5. EPZICOM [Concomitant]
     Active Substance: ABACAVIR SULFATE\LAMIVUDINE
  6. ISENTRESS [Concomitant]
     Active Substance: RALTEGRAVIR POTASSIUM
  7. JULUCA [Concomitant]
     Active Substance: DOLUTEGRAVIR SODIUM\RILPIVIRINE HYDROCHLORIDE
  8. SUSTIVA [Concomitant]
     Active Substance: EFAVIRENZ
  9. TIVICAY [Concomitant]
     Active Substance: DOLUTEGRAVIR SODIUM
  10. TRIUMEQ [Concomitant]
     Active Substance: ABACAVIR SULFATE\DOLUTEGRAVIR SODIUM\LAMIVUDINE
  11. ALLOPURINOL [Concomitant]
     Active Substance: ALLOPURINOL
  12. AMLODIPINE [Concomitant]
     Active Substance: AMLODIPINE BESYLATE
  13. AMOXICILLIN [Concomitant]
     Active Substance: AMOXICILLIN
  14. AZITHROMYCIN ANHYDROUS [Concomitant]
     Active Substance: AZITHROMYCIN ANHYDROUS
  15. BUPROPION [Concomitant]
     Active Substance: BUPROPION
  16. CARVEDILOL [Concomitant]
     Active Substance: CARVEDILOL
  17. CEPHALEXIN [Concomitant]
     Active Substance: CEPHALEXIN
  18. CIPROFLOXACIN [Concomitant]
     Active Substance: CIPROFLOXACIN
  19. COLCRYS [Concomitant]
     Active Substance: COLCHICINE
  20. COUMADIN [Concomitant]
     Active Substance: WARFARIN SODIUM
  21. CYCLOBENZAPRINE [Concomitant]
     Active Substance: CYCLOBENZAPRINE
  22. FOLIC ACID [Concomitant]
     Active Substance: FOLIC ACID
  23. KETOCONAZOLE [Concomitant]
     Active Substance: KETOCONAZOLE
  24. LANSOPRAZOLE [Concomitant]
     Active Substance: LANSOPRAZOLE
  25. LISINOPRIL [Concomitant]
     Active Substance: LISINOPRIL
  26. METHYLPREDNISOLONE [Concomitant]
     Active Substance: METHYLPREDNISOLONE
  27. SULFAMETHOXAZOLE [Concomitant]
     Active Substance: SULFAMETHOXAZOLE
  28. XARELTO [Concomitant]
     Active Substance: RIVAROXABAN

REACTIONS (5)
  - Chronic kidney disease [Not Recovered/Not Resolved]
  - Pain [Not Recovered/Not Resolved]
  - Emotional distress [Not Recovered/Not Resolved]
  - Anxiety [Not Recovered/Not Resolved]
  - Anhedonia [Not Recovered/Not Resolved]

NARRATIVE: CASE EVENT DATE: 20180101
